FAERS Safety Report 9598093 (Version 1)
Quarter: 2013Q4

REPORT INFORMATION
  Report Type: Spontaneous
  Country: US (occurrence: US)
  Receive Date: 20131004
  Receipt Date: 20131004
  Transmission Date: 20140711
  Serious: No
  Sender: FDA-Public Use
  Company Number: US-AMGEN-USASP2013022134

PATIENT
  Age: 63 Year
  Sex: Female
  Weight: 61.22 kg

DRUGS (11)
  1. ENBREL [Suspect]
     Indication: PRODUCT USED FOR UNKNOWN INDICATION
     Dosage: 50 MG, QWK
     Route: 058
  2. FLECAINIDE [Concomitant]
     Dosage: 50 MG, UNK
  3. METHOTREXATE [Concomitant]
     Dosage: 2.5 MG, UNK
  4. SIMVASTATIN [Concomitant]
     Dosage: 10 MG, UNK
  5. ESTRACE [Concomitant]
     Dosage: 2 MG, UNK
  6. LEVOXYL [Concomitant]
     Dosage: 50 MUG, UNK
  7. AMBIEN [Concomitant]
     Dosage: 5 MG, UNK
  8. FOLIC ACID [Concomitant]
     Dosage: UNK
  9. CALCIUM + MAGNESIUM + ZINK [Concomitant]
     Dosage: UNK
  10. VITAMIN D                          /00107901/ [Concomitant]
     Dosage: 1000 UNIT, UNK
  11. VITAMIN D3 [Concomitant]
     Dosage: 2000 UNIT, UNK

REACTIONS (2)
  - Pain in extremity [Unknown]
  - Inflammation [Unknown]
